FAERS Safety Report 20393787 (Version 2)
Quarter: 2022Q1

REPORT INFORMATION
  Report Type: Spontaneous
  Country: IT (occurrence: IT)
  Receive Date: 20220128
  Receipt Date: 20220208
  Transmission Date: 20220424
  Serious: Yes (Hospitalization)
  Sender: FDA-Public Use
  Company Number: None

PATIENT
  Age: 54 Year
  Sex: Male

DRUGS (9)
  1. CABOMETYX [Suspect]
     Active Substance: CABOZANTINIB S-MALATE
     Indication: Renal cancer stage IV
     Dosage: 40 MG, QD
     Route: 048
     Dates: start: 20211105, end: 20220110
  2. METOPROLOL [Concomitant]
     Active Substance: METOPROLOL
  3. SODIUM BICARBONATE [Concomitant]
     Active Substance: SODIUM BICARBONATE
  4. ERITROPOIETINA + GRANULOCYTE-MACROPHAGE COLONY STIMULA [Concomitant]
     Indication: Nephrogenic anaemia
     Dosage: 6000 K[IU], QOD
     Route: 058
  5. KAYEXALATE [Concomitant]
     Active Substance: SODIUM POLYSTYRENE SULFONATE
  6. ROCALTROL [Concomitant]
     Active Substance: CALCITRIOL
  7. GLICLAZIDE [Concomitant]
     Active Substance: GLICLAZIDE
  8. LYRICA [Concomitant]
     Active Substance: PREGABALIN
  9. AMLODIPINE [Concomitant]
     Active Substance: AMLODIPINE BESYLATE

REACTIONS (2)
  - Stent placement [Recovered/Resolved with Sequelae]
  - Myocardial ischaemia [Recovered/Resolved with Sequelae]

NARRATIVE: CASE EVENT DATE: 20220110
